FAERS Safety Report 8121236-2 (Version None)
Quarter: 2012Q1

REPORT INFORMATION
  Report Type: 
  Country: None (occurrence: None)
  Receive Date: 20120203
  Receipt Date: 20120120
  Transmission Date: 20120608
  Serious: Yes (Death, Other)
  Sender: FDA-Public Use
  Company Number: US-2012-10069

PATIENT
  Age: 17 Month
  Sex: Male

DRUGS (8)
  1. ANTIHYMOCYTE IMMUNOGLOBULIN (ANTIHYMOCYTE IMMUNOGLOBULIN) [Concomitant]
  2. CYTARABINE [Concomitant]
  3. BUSULFAN [Suspect]
     Indication: STEM CELL TRANSPLANT
  4. MELPHALAN HYDROCHLORIDE [Concomitant]
  5. MERCAPOTPURINE (MERCAPOTPURINE) [Concomitant]
  6. CYCLOPHOSPHAMIDE [Concomitant]
  7. THIOTEPA [Concomitant]
  8. FLUDARABINE PHOSPHATE [Concomitant]

REACTIONS (10)
  - MULTI-ORGAN FAILURE [None]
  - LEUKAEMIC INFILTRATION PULMONARY [None]
  - STEM CELL TRANSPLANT [None]
  - RESPIRATORY FAILURE [None]
  - SURGICAL PROCEDURE REPEATED [None]
  - DELAYED ENGRAFTMENT [None]
  - GENERAL PHYSICAL HEALTH DETERIORATION [None]
  - METAPNEUMOVIRUS INFECTION [None]
  - TRANSPLANT REJECTION [None]
  - RESPIRATORY DISTRESS [None]
